FAERS Safety Report 15076597 (Version 1)
Quarter: 2018Q2

REPORT INFORMATION
  Report Type: Report from Study
  Country: PL (occurrence: PL)
  Receive Date: 20180627
  Receipt Date: 20180627
  Transmission Date: 20180711
  Serious: Yes (Hospitalization)
  Sender: FDA-Public Use
  Company Number: PL-009507513-1712POL001867

PATIENT
  Age: 68 Year
  Sex: Female
  Weight: 75.1 kg

DRUGS (15)
  1. BLINDED ERTUGLIFLOZIN [Suspect]
     Active Substance: ERTUGLIFLOZIN
     Indication: TYPE 2 DIABETES MELLITUS
     Dosage: UNK
     Route: 048
     Dates: start: 20141113, end: 20180106
  2. RAMIPRIL. [Concomitant]
     Active Substance: RAMIPRIL
     Indication: HYPERTENSION
  3. CONTROLOC (PANTOPRAZOLE) [Concomitant]
     Indication: PROPHYLAXIS
     Dosage: TOTAL DAILY DOSE: 20 MG
     Dates: start: 201206
  4. INSULATARD (INSULIN HUMAN, ISOPHANE) [Concomitant]
     Active Substance: INSULIN HUMAN
     Indication: DIABETES MELLITUS
     Dosage: 30 MG DAILY
     Dates: start: 20141229
  5. PLAVIX [Concomitant]
     Active Substance: CLOPIDOGREL BISULFATE
     Indication: CORONARY ARTERY DISEASE
     Dosage: TOTAL DAILY DOSE: 75 MG
     Dates: start: 201206
  6. ASPIRIN. [Concomitant]
     Active Substance: ASPIRIN
     Indication: CORONARY ARTERY DISEASE
     Dosage: TOTAL DAILY DOSE: 75 MG
     Route: 048
     Dates: start: 201206
  7. HYGROTON [Concomitant]
     Active Substance: CHLORTHALIDONE
     Indication: HYPERTENSION
     Dosage: TOTAL DAILY DOSE: 50 MG
     Dates: start: 201212
  8. KETONAL [Concomitant]
     Active Substance: KETOPROFEN
     Indication: SPINAL OSTEOARTHRITIS
     Dosage: TOTAL DAILY DOSE: 50 MG, PRN
     Dates: start: 201401
  9. MONONIT [Concomitant]
     Indication: CORONARY ARTERY DISEASE
     Dosage: TOTAL DAILY DOSE: 100 MG
     Dates: start: 20151123
  10. SIOFOR [Concomitant]
     Active Substance: METFORMIN HYDROCHLORIDE
     Indication: DIABETES MELLITUS
     Dosage: TOTAL DAILY DOSE: 2700 MG
     Dates: start: 200001
  11. AMLODIPINE [Concomitant]
     Active Substance: AMLODIPINE BESYLATE
     Indication: HYPERTENSION
     Dosage: TOTAL DAILY DOSE: 10 MG
     Dates: start: 20160311
  12. ROSUVASTATIN. [Concomitant]
     Active Substance: ROSUVASTATIN
     Indication: HYPERLIPIDAEMIA
     Dosage: TOTAL DAILY DOSE: 10 MG
     Dates: start: 20151123
  13. ACTRAPID (INSULIN, NEUTRAL) [Concomitant]
     Indication: DIABETES MELLITUS
     Dosage: TOTAL DAILY DOSE: 72 IU
     Dates: start: 201404
  14. RAMIPRIL. [Concomitant]
     Active Substance: RAMIPRIL
     Indication: CORONARY ARTERY DISEASE
     Dosage: TOTAL DAILY DOSE: 10 MG
     Dates: start: 200201
  15. CONCOR [Concomitant]
     Active Substance: BISOPROLOL FUMARATE
     Indication: CORONARY ARTERY DISEASE
     Dosage: TOTAL DAILY DOSE: 2.5 MG
     Dates: start: 201206

REACTIONS (3)
  - Rectal cancer [Recovering/Resolving]
  - Rectal polyp [Recovered/Resolved]
  - Metabolic acidosis [Recovered/Resolved]

NARRATIVE: CASE EVENT DATE: 20170220
